FAERS Safety Report 4709705-6 (Version None)
Quarter: 2005Q3

REPORT INFORMATION
  Report Type: 
  Country: None (occurrence: None)
  Receive Date: 20050707
  Receipt Date: 20050622
  Transmission Date: 20060218
  Serious: Yes (Other)
  Sender: FDA-Public Use
  Company Number: USA0506101077

PATIENT
  Age: 73 Year
  Sex: Male

DRUGS (1)
  1. HUMULIN R [Suspect]
     Indication: BLOOD GLUCOSE INCREASED

REACTIONS (2)
  - BLOOD GLUCOSE INCREASED [None]
  - DIPLOPIA [None]
